FAERS Safety Report 19960401 (Version 1)
Quarter: 2021Q4

REPORT INFORMATION
  Report Type: Spontaneous
  Country: US (occurrence: US)
  Receive Date: 20211015
  Receipt Date: 20211015
  Transmission Date: 20220303
  Serious: Yes (Hospitalization, Other)
  Sender: FDA-Public Use
  Company Number: US-COLLEGIUM PHARMACEUTICAL, INC.-2021CGM00765

PATIENT
  Age: 42 Year
  Sex: Male

DRUGS (9)
  1. NUCYNTA ER [Suspect]
     Active Substance: TAPENTADOL HYDROCHLORIDE
     Indication: Arthralgia
     Dosage: 200 MG, 2X/DAY (EVERY 12 HOURS)
     Route: 048
     Dates: start: 20200113
  2. NUCYNTA ER [Suspect]
     Active Substance: TAPENTADOL HYDROCHLORIDE
     Dosage: 100 MG, 2X/DAY (EVERY 12 HOURS)
     Route: 048
     Dates: start: 20210708
  3. NUCYNTA [Suspect]
     Active Substance: TAPENTADOL HYDROCHLORIDE
     Indication: Arthralgia
     Dosage: 100 MG, 4X/DAY
     Route: 048
     Dates: start: 20200113
  4. NUCYNTA [Suspect]
     Active Substance: TAPENTADOL HYDROCHLORIDE
     Dosage: 100 MG, 3X/DAY AS NEEDED
     Route: 048
     Dates: start: 20210708
  5. CYMBALTA [Suspect]
     Active Substance: DULOXETINE HYDROCHLORIDE
     Indication: Arthralgia
     Dosage: 120 MG, 1X/DAY
     Route: 048
     Dates: start: 20190401
  6. CYMBALTA [Suspect]
     Active Substance: DULOXETINE HYDROCHLORIDE
     Dosage: 60 MG, 1X/DAY EVERY PM
     Route: 048
     Dates: start: 20210617
  7. ALPRAZOLAM [Concomitant]
     Active Substance: ALPRAZOLAM
     Dosage: 0.5 MG, ONE TIME AS NEEDED
     Route: 048
  8. IBUPROFEN [Concomitant]
     Active Substance: IBUPROFEN
     Dosage: 600 MG, 3X/DAY
     Route: 048
     Dates: start: 20180425
  9. NALOXONE HYDROCHLORIDE [Concomitant]
     Active Substance: NALOXONE HYDROCHLORIDE
     Dosage: 2 MG, ONCE
     Route: 030
     Dates: start: 20200903

REACTIONS (2)
  - Serotonin syndrome [Recovered/Resolved]
  - Drug interaction [Recovered/Resolved]

NARRATIVE: CASE EVENT DATE: 20210602
